FAERS Safety Report 5530604-4 (Version None)
Quarter: 2007Q4

REPORT INFORMATION
  Report Type: 
  Country: None (occurrence: None)
  Receive Date: 20071130
  Receipt Date: 20071126
  Transmission Date: 20080405
  Serious: Yes (Other)
  Sender: FDA-Public Use
  Company Number: A0677695A

PATIENT
  Age: 47 Year
  Sex: Female
  Weight: 68.6 kg

DRUGS (1)
  1. ALLI [Suspect]
     Indication: DRUG USE FOR UNKNOWN INDICATION
     Dates: start: 20070719

REACTIONS (9)
  - DEPRESSION [None]
  - DIZZINESS [None]
  - GASTROINTESTINAL DISORDER [None]
  - HEADACHE [None]
  - NAUSEA [None]
  - RECTAL DISCHARGE [None]
  - SPINAL COMPRESSION FRACTURE [None]
  - VERTIGO [None]
  - WEIGHT INCREASED [None]
